FAERS Safety Report 17331189 (Version 2)
Quarter: 2020Q1

REPORT INFORMATION
  Report Type: Spontaneous
  Country: IT (occurrence: IT)
  Receive Date: 20200128
  Receipt Date: 20200129
  Transmission Date: 20200409
  Serious: Yes (Congenital Anomaly, Other)
  Sender: FDA-Public Use
  Company Number: IT-MYLANLABS-2020M1009664

PATIENT
  Sex: Male

DRUGS (3)
  1. ARAVA [Suspect]
     Active Substance: LEFLUNOMIDE
     Indication: PRODUCT USED FOR UNKNOWN INDICATION
     Dosage: 20 MILLIGRAM, QD (MATERNAL DOSE: 20MG, QD FROM 0.4 TO 3.7 WEEKS)
     Route: 064
  2. PREDNISONE. [Suspect]
     Active Substance: PREDNISONE
     Indication: PRODUCT USED FOR UNKNOWN INDICATION
     Dosage: UNK
     Route: 064
  3. LEFLUNOMIDE. [Suspect]
     Active Substance: LEFLUNOMIDE
     Indication: PRODUCT USED FOR UNKNOWN INDICATION
     Dosage: 20 MILLIGRAM, QD
     Route: 064

REACTIONS (6)
  - Spina bifida [Unknown]
  - Heart block congenital [Unknown]
  - Patent ductus arteriosus [Unknown]
  - Premature baby [Unknown]
  - Pierre Robin syndrome [Unknown]
  - Foetal exposure during pregnancy [Recovered/Resolved]
